FAERS Safety Report 25431039 (Version 1)
Quarter: 2025Q2

REPORT INFORMATION
  Report Type: Report from Study
  Country: US (occurrence: US)
  Receive Date: 20250612
  Receipt Date: 20250612
  Transmission Date: 20250717
  Serious: Yes (Hospitalization, Other)
  Sender: ALEXION PHARMACEUTICALS
  Company Number: US-AstraZeneca-CH-00887608A

PATIENT
  Weight: 116.5 kg

DRUGS (1)
  1. ACALABRUTINIB [Suspect]
     Active Substance: ACALABRUTINIB
     Indication: Breast cancer female
     Dosage: 200 MILLIGRAM, BID

REACTIONS (8)
  - Anaemia [Unknown]
  - Chronic kidney disease [Unknown]
  - Diarrhoea [Unknown]
  - Hypoglycaemia [Unknown]
  - Fatigue [Unknown]
  - Dyspnoea [Unknown]
  - Peripheral swelling [Unknown]
  - Joint swelling [Unknown]
